FAERS Safety Report 13961824 (Version 1)
Quarter: 2017Q3

REPORT INFORMATION
  Report Type: Spontaneous
  Country: US (occurrence: US)
  Receive Date: 20170912
  Receipt Date: 20170912
  Transmission Date: 20171128
  Serious: Yes (Other)
  Sender: FDA-Public Use
  Company Number: US-APOTEX-2017AP018434

PATIENT
  Age: 88 Year
  Sex: Male

DRUGS (1)
  1. CEFEPIME [Suspect]
     Active Substance: CEFEPIME HYDROCHLORIDE
     Indication: PNEUMONIA
     Route: 065

REACTIONS (7)
  - Myoclonus [Recovered/Resolved]
  - Neurotoxicity [Recovered/Resolved]
  - Muscle twitching [Recovered/Resolved]
  - Metabolic encephalopathy [Recovered/Resolved]
  - Tardive dyskinesia [Recovered/Resolved]
  - Confusional state [Recovered/Resolved]
  - Toxic encephalopathy [Recovered/Resolved]
